FAERS Safety Report 17442147 (Version 5)
Quarter: 2022Q1

REPORT INFORMATION
  Report Type: Report from Study
  Country: US (occurrence: US)
  Receive Date: 20200220
  Receipt Date: 20220315
  Transmission Date: 20220423
  Serious: Yes (Other)
  Sender: FDA-Public Use
  Company Number: US-GILEAD-2020-0451789

PATIENT
  Age: 69 Year
  Sex: Female

DRUGS (1)
  1. AXICABTAGENE CILOLEUCEL [Suspect]
     Active Substance: AXICABTAGENE CILOLEUCEL
     Indication: Non-Hodgkin^s lymphoma
     Dosage: UNK
     Route: 042
     Dates: start: 20190423, end: 20190423

REACTIONS (19)
  - Left ventricular failure [Not Recovered/Not Resolved]
  - Atrial fibrillation [Recovered/Resolved]
  - Influenza [Unknown]
  - Pain [Unknown]
  - Feeding disorder [Unknown]
  - Dysgraphia [Unknown]
  - Memory impairment [Unknown]
  - Hypersomnia [Recovered/Resolved]
  - Neuropathy peripheral [Not Recovered/Not Resolved]
  - Pyrexia [Unknown]
  - Tremor [Recovering/Resolving]
  - Drug hypersensitivity [Recovered/Resolved]
  - Dermatitis allergic [Recovered/Resolved]
  - Diarrhoea [Recovered/Resolved]
  - Feeling cold [Recovered/Resolved]
  - Decreased appetite [Recovered/Resolved]
  - Meniscus injury [Unknown]
  - Malaise [Recovered/Resolved]
  - Fatigue [Recovered/Resolved]

NARRATIVE: CASE EVENT DATE: 20190101
